FAERS Safety Report 18080940 (Version 1)
Quarter: 2020Q3

REPORT INFORMATION
  Report Type: Spontaneous
  Country: US (occurrence: US)
  Receive Date: 20200728
  Receipt Date: 20200728
  Transmission Date: 20201103
  Serious: Yes (Other)
  Sender: FDA-Public Use
  Company Number: US-BRISTOL-MYERS SQUIBB COMPANY-BMS-2020-058271

PATIENT
  Age: 67 Year
  Sex: Male

DRUGS (3)
  1. DEXAMETHASONE. [Suspect]
     Active Substance: DEXAMETHASONE
     Indication: APHAKIA
     Route: 057
  2. TRIAMCINOLONE ACETONIDE. [Suspect]
     Active Substance: TRIAMCINOLONE ACETONIDE
     Indication: APHAKIA
  3. PREDNISOLONE. [Suspect]
     Active Substance: PREDNISOLONE
     Indication: APHAKIA
     Route: 061

REACTIONS (2)
  - Intentional product use issue [Unknown]
  - Cytomegalovirus chorioretinitis [Recovering/Resolving]
